FAERS Safety Report 23885476 (Version 1)
Quarter: 2024Q2

REPORT INFORMATION
  Report Type: Spontaneous
  Country: US (occurrence: US)
  Receive Date: 20240522
  Receipt Date: 20240522
  Transmission Date: 20240715
  Serious: No
  Sender: FDA-Public Use
  Company Number: US-BIOGEN-2021BI01014865

PATIENT
  Age: 17 Year
  Sex: Male

DRUGS (2)
  1. TYSABRI [Suspect]
     Active Substance: NATALIZUMAB
     Indication: Multiple sclerosis
     Route: 050
     Dates: start: 20150625
  2. METHYLPREDNISOLONE [Concomitant]
     Active Substance: METHYLPREDNISOLONE
     Indication: Product used for unknown indication
     Route: 050
     Dates: start: 20210412, end: 20210414

REACTIONS (5)
  - Off label use [Recovered/Resolved]
  - Malaise [Unknown]
  - COVID-19 [Unknown]
  - Illness [Unknown]
  - Tremor [Unknown]

NARRATIVE: CASE EVENT DATE: 20150625
